FAERS Safety Report 19068882 (Version 1)
Quarter: 2021Q1

REPORT INFORMATION
  Report Type: Spontaneous
  Country: US (occurrence: US)
  Receive Date: 20210328
  Receipt Date: 20210328
  Transmission Date: 20210420
  Serious: Yes (Death)
  Sender: FDA-Public Use
  Company Number: None

PATIENT
  Age: 33 Year
  Sex: Male
  Weight: 70.5 kg

DRUGS (1)
  1. KRATOM POWDER [Suspect]
     Active Substance: HERBALS\MITRAGYNINE
     Indication: PAIN
     Route: 048

REACTIONS (8)
  - QRS axis abnormal [None]
  - Myoclonus [None]
  - Pulseless electrical activity [None]
  - Blood calcium decreased [None]
  - Electrocardiogram ST segment depression [None]
  - Troponin increased [None]
  - Cardio-respiratory arrest [None]
  - Bundle branch block right [None]

NARRATIVE: CASE EVENT DATE: 20210326
